FAERS Safety Report 15856607 (Version 2)
Quarter: 2019Q1

REPORT INFORMATION
  Report Type: Report from Study
  Country: US (occurrence: US)
  Receive Date: 20190123
  Receipt Date: 20190131
  Transmission Date: 20190417
  Serious: Yes (Hospitalization, Other)
  Sender: FDA-Public Use
  Company Number: US-BRISTOL-MYERS SQUIBB COMPANY-BMS-2019-003893

PATIENT
  Age: 51 Year
  Sex: Female

DRUGS (2)
  1. NIVOLUMAB [Suspect]
     Active Substance: NIVOLUMAB
     Indication: SARCOMA
     Dosage: 360 MG, Q3WK
     Route: 065
     Dates: start: 20190108
  2. NKTR-214 [Suspect]
     Active Substance: BEMPEGALDESLEUKIN
     Indication: SARCOMA
     Dosage: 0.006 MG/KG, Q3WK
     Route: 065
     Dates: start: 20190108

REACTIONS (6)
  - Rash maculo-papular [Recovered/Resolved]
  - Hypotension [Recovered/Resolved]
  - Pyrexia [Recovered/Resolved]
  - Parotitis [Recovering/Resolving]
  - Amylase increased [Recovering/Resolving]
  - Pain [Recovered/Resolved]

NARRATIVE: CASE EVENT DATE: 20190111
